FAERS Safety Report 7873082-2 (Version None)
Quarter: 2011Q4

REPORT INFORMATION
  Report Type: 
  Country: None (occurrence: None)
  Receive Date: 20111030
  Receipt Date: 20110421
  Transmission Date: 20120403
  Serious: No
  Sender: FDA-Public Use
  Company Number: US-AMGEN-USASP2011021200

PATIENT
  Sex: Male

DRUGS (11)
  1. ENBREL [Suspect]
     Indication: PRODUCT USED FOR UNKNOWN INDICATION
     Dosage: 50 MG, QWK
     Route: 058
  2. THEOPHYLLINE [Concomitant]
     Dosage: 125 MG, UNK
  3. CENTRUM SILVER                     /01292501/ [Concomitant]
  4. METHOTREXATE [Concomitant]
     Dosage: 30 MG, UNK
  5. ZOCOR [Concomitant]
     Dosage: 40 MG, UNK
  6. TOPROL-XL [Concomitant]
     Dosage: 25 MG, UNK
  7. COMBIVENT [Concomitant]
  8. CARDURA [Concomitant]
     Dosage: 1 MG, UNK
  9. ASPIRIN [Concomitant]
     Dosage: 81 MG, UNK
  10. FOLIC ACID [Concomitant]
     Dosage: 1 MG, UNK
  11. PLAVIX [Concomitant]
     Dosage: 75 MG, UNK

REACTIONS (1)
  - NASOPHARYNGITIS [None]
